FAERS Safety Report 11291338 (Version 1)
Quarter: 2015Q3

REPORT INFORMATION
  Report Type: Spontaneous
  Country: US (occurrence: None)
  Receive Date: 20150721
  Receipt Date: 20150721
  Transmission Date: 20151125
  Serious: Yes (Death)
  Sender: FDA-Public Use
  Company Number: None

PATIENT
  Age: 54 Year
  Sex: Female
  Weight: 136 kg

DRUGS (35)
  1. ATORVASTATIN [Concomitant]
     Active Substance: ATORVASTATIN
  2. DOXYCYCLINE. [Concomitant]
     Active Substance: DOXYCYCLINE
  3. GABAPENTIN. [Concomitant]
     Active Substance: GABAPENTIN
  4. FENTANYL. [Concomitant]
     Active Substance: FENTANYL
  5. MEROPENEM. [Concomitant]
     Active Substance: MEROPENEM
  6. XARELTO [Suspect]
     Active Substance: RIVAROXABAN
     Indication: AORTIC VALVE REPLACEMENT
     Route: 048
  7. ALBUMIN [Concomitant]
     Active Substance: ALBUMIN (HUMAN)
  8. VASOPORESSIN [Concomitant]
  9. CHLORHEXIDINE [Concomitant]
     Active Substance: CHLORHEXIDINE
  10. HYDROCORTISONE. [Concomitant]
     Active Substance: HYDROCORTISONE
  11. SLIDING SCALE INSULIN [Concomitant]
     Active Substance: INSULIN NOS
  12. DI-VI-SOL [Concomitant]
  13. PROPOFOL. [Concomitant]
     Active Substance: PROPOFOL
  14. FUROSEMIDE. [Concomitant]
     Active Substance: FUROSEMIDE
  15. PREGABALIN. [Concomitant]
     Active Substance: PREGABALIN
  16. PANTOPRAZOLE [Concomitant]
     Active Substance: PANTOPRAZOLE SODIUM
  17. LIDODERM [Concomitant]
     Active Substance: LIDOCAINE
  18. PREDNISONE. [Concomitant]
     Active Substance: PREDNISONE
  19. TPA BOLUS [Concomitant]
  20. DOBUTAMINE [Concomitant]
     Active Substance: DOBUTAMINE\DOBUTAMINE HYDROCHLORIDE
  21. VANCOMYCIN [Concomitant]
     Active Substance: VANCOMYCIN
  22. FLUOXETINE [Concomitant]
     Active Substance: FLUOXETINE\FLUOXETINE HYDROCHLORIDE
  23. EPINEPHRINE. [Concomitant]
     Active Substance: EPINEPHRINE
  24. SODIUM BICARB [Concomitant]
  25. HYDROCODONE/APAP [Concomitant]
     Active Substance: ACETAMINOPHEN\HYDROCODONE BITARTRATE
  26. LEVOTHYROXINE. [Concomitant]
     Active Substance: LEVOTHYROXINE
  27. POTASSIUM CHLORIDE. [Concomitant]
     Active Substance: POTASSIUM CHLORIDE
  28. MIDAZOLAM [Concomitant]
     Active Substance: MIDAZOLAM\MIDAZOLAM HYDROCHLORIDE
  29. NOREPINEPHRINE [Concomitant]
     Active Substance: NOREPINEPHRINE\NOREPINEPHRINE BITARTRATE
  30. MORPHINE [Concomitant]
     Active Substance: MORPHINE
  31. VECURONIUM [Concomitant]
     Active Substance: VECURONIUM BROMIDE
  32. ALBUTEROL NEBULIZATION [Concomitant]
  33. AZITHROMYCIN [Concomitant]
     Active Substance: AZITHROMYCIN ANHYDROUS
  34. METOPROLOL TARTRATE. [Concomitant]
     Active Substance: METOPROLOL TARTRATE
  35. MAGNESIUM [Concomitant]
     Active Substance: MAGNESIUM

REACTIONS (7)
  - Cardiac valve replacement complication [None]
  - Respiratory distress [None]
  - Sepsis [None]
  - Septic shock [None]
  - Acute myocardial infarction [None]
  - Hypotension [None]
  - General physical health deterioration [None]

NARRATIVE: CASE EVENT DATE: 20150717
